FAERS Safety Report 5937382-5 (Version None)
Quarter: 2008Q4

REPORT INFORMATION
  Report Type: 
  Country: None (occurrence: None)
  Receive Date: 20081031
  Receipt Date: 20081024
  Transmission Date: 20090506
  Serious: Yes (Hospitalization)
  Sender: FDA-Public Use
  Company Number: PHHO2008DE12730

PATIENT
  Sex: Male

DRUGS (3)
  1. CYCLOSPORINE [Suspect]
     Indication: RENAL TRANSPLANT
     Dosage: 75 MG, BID
     Route: 048
  2. MYFORTIC [Suspect]
     Dosage: 360 MG, BID2SDO
     Route: 048
  3. NO TREATMENT RECEIVED NOMED [Suspect]
     Indication: RENAL TRANSPLANT
     Dosage: UNK

REACTIONS (1)
  - IMPAIRED HEALING [None]
